FAERS Safety Report 10159242 (Version 2)
Quarter: 2014Q2

REPORT INFORMATION
  Report Type: Spontaneous
  Country: CA (occurrence: CA)
  Receive Date: 20140508
  Receipt Date: 20140519
  Transmission Date: 20141212
  Serious: Yes (Death, Other)
  Sender: FDA-Public Use
  Company Number: CA-JNJFOC-20140500342

PATIENT
  Sex: Male

DRUGS (2)
  1. CONCERTA [Suspect]
     Indication: ATTENTION DEFICIT/HYPERACTIVITY DISORDER
     Route: 048
     Dates: start: 20101213
  2. CONCERTA [Suspect]
     Indication: ATTENTION DEFICIT/HYPERACTIVITY DISORDER
     Route: 048

REACTIONS (13)
  - Cardiac failure [Fatal]
  - Cardiomegaly [Fatal]
  - Pulmonary oedema [Fatal]
  - Arteriosclerosis [Fatal]
  - Arrhythmia [Fatal]
  - Syncope [Unknown]
  - Hypertension [Unknown]
  - Liver function test abnormal [Unknown]
  - Diabetes mellitus [Unknown]
  - Anxiety [Unknown]
  - Palpitations [Unknown]
  - Fatigue [Unknown]
  - Blood cholesterol increased [Unknown]
